FAERS Safety Report 7120970-0 (Version None)
Quarter: 2010Q4

REPORT INFORMATION
  Report Type: 
  Country: None (occurrence: None)
  Receive Date: 20101124
  Receipt Date: 20100201
  Transmission Date: 20110411
  Serious: No
  Sender: FDA-Public Use
  Company Number: US-PFIZER INC-2010014075

PATIENT
  Sex: Male
  Weight: 77.551 kg

DRUGS (10)
  1. TIKOSYN [Suspect]
     Indication: ATRIAL FIBRILLATION
     Dosage: 0.5 MG, 2X/DAY
     Dates: start: 20070101
  2. TIKOSYN [Suspect]
     Indication: MYOCARDIAL INFARCTION
  3. TIKOSYN [Suspect]
     Indication: DYSPNOEA
  4. WARFARIN [Concomitant]
     Dosage: 5 MG, UNK
  5. ACCUTANE [Concomitant]
     Dosage: UNK
  6. VITAMIN B-12 [Concomitant]
     Dosage: UNK
  7. DIGOXIN [Concomitant]
     Dosage: 125 MG, DAILY
  8. LORAZEPAM [Concomitant]
     Dosage: 0.5 MG, UNK
  9. ICAPS [Concomitant]
     Dosage: UNK
  10. FISH OIL [Concomitant]
     Dosage: 2000 IU, 2X/DAY

REACTIONS (1)
  - FATIGUE [None]
